FAERS Safety Report 4364417-6 (Version None)
Quarter: 2004Q2

REPORT INFORMATION
  Report Type: 
  Country: None (occurrence: None)
  Receive Date: 20040525
  Receipt Date: 20040428
  Transmission Date: 20050107
  Serious: Yes (Hospitalization)
  Sender: FDA-Public Use
  Company Number: JP-ROCHE-365698

PATIENT
  Age: 66 Year
  Sex: Male

DRUGS (4)
  1. PERDIPINE [Suspect]
     Indication: HYPERTENSION
     Route: 048
  2. URINORM [Concomitant]
     Indication: HYPERTENSION
     Route: 048
  3. STRONG NEO-MINOPHAGEN C [Concomitant]
     Route: 042
     Dates: start: 19960615
  4. ALLOPURINOL [Concomitant]

REACTIONS (17)
  - ALANINE AMINOTRANSFERASE INCREASED [None]
  - ASPARTATE AMINOTRANSFERASE INCREASED [None]
  - BLOOD ALBUMIN DECREASED [None]
  - BLOOD PRESSURE INCREASED [None]
  - CRYOGLOBULINAEMIA [None]
  - GENERALISED OEDEMA [None]
  - GLOMERULONEPHRITIS MEMBRANOPROLIFERATIVE [None]
  - HEPATIC CIRRHOSIS [None]
  - HEPATITIS C ANTIBODY POSITIVE [None]
  - HEPATITIS C RNA POSITIVE [None]
  - HEPATOSPLENOMEGALY [None]
  - INVESTIGATION ABNORMAL [None]
  - OLIGURIA [None]
  - PLATELET COUNT DECREASED [None]
  - RENAL DISORDER [None]
  - WEIGHT INCREASED [None]
  - WHITE BLOOD CELL COUNT DECREASED [None]
